FAERS Safety Report 8184896-6 (Version None)
Quarter: 2012Q1

REPORT INFORMATION
  Report Type: 
  Country: None (occurrence: None)
  Receive Date: 20120305
  Receipt Date: 20120301
  Transmission Date: 20120608
  Serious: Yes (Death, Hospitalization)
  Sender: FDA-Public Use
  Company Number: US-GLAXOSMITHKLINE-A0902303A

PATIENT
  Age: 77 Year
  Sex: Male

DRUGS (1)
  1. AVANDIA [Suspect]
     Indication: DIABETES MELLITUS
     Dosage: 8MG PER DAY
     Route: 048
     Dates: start: 20030414, end: 20081215

REACTIONS (5)
  - CEREBROVASCULAR ACCIDENT [None]
  - ISCHAEMIC CARDIOMYOPATHY [None]
  - DEATH [None]
  - PERIPHERAL VASCULAR DISORDER [None]
  - ATRIAL FIBRILLATION [None]
